FAERS Safety Report 25859065 (Version 1)
Quarter: 2025Q3

REPORT INFORMATION
  Report Type: Spontaneous
  Country: US (occurrence: US)
  Receive Date: 20250929
  Receipt Date: 20250929
  Transmission Date: 20251020
  Serious: No
  Sender: CURIUM PHARMACEUTICALS
  Company Number: US-CURIUM-2025000583

PATIENT
  Age: 61 Year
  Sex: Female

DRUGS (1)
  1. DETECTNET [Suspect]
     Active Substance: COPPER OXODOTREOTIDE CU-64
     Indication: Medullary thyroid cancer
     Route: 042
     Dates: start: 20250827, end: 20250827

REACTIONS (4)
  - Flushing [Recovered/Resolved]
  - Feeling hot [Recovered/Resolved]
  - Nausea [Recovered/Resolved]
  - Retching [Recovered/Resolved]

NARRATIVE: CASE EVENT DATE: 20250827
